FAERS Safety Report 19199225 (Version 1)
Quarter: 2021Q2

REPORT INFORMATION
  Report Type: Spontaneous
  Country: US (occurrence: US)
  Receive Date: 20210429
  Receipt Date: 20210429
  Transmission Date: 20210717
  Serious: Yes (Other)
  Sender: FDA-Public Use
  Company Number: None

PATIENT
  Age: 57 Year
  Sex: Female

DRUGS (20)
  1. ATORVASTATIN TAB 10MG [Concomitant]
     Dates: start: 20200820
  2. GLIMEPRIDE TAB 1MG [Concomitant]
     Dates: start: 20201112
  3. JANUVIA TAB 100MG [Concomitant]
     Dates: start: 20210113
  4. OXYCODONE TAB 15MG [Concomitant]
     Dates: start: 20210301
  5. UBRELVY TAB 50MG [Concomitant]
     Dates: start: 20210323
  6. EMGALITY INJ 120MG/ML [Concomitant]
     Dates: start: 20210324
  7. NITROFURANTIN CAP 100MG [Concomitant]
     Dates: start: 20210419
  8. CITALOPRAM TAB 20MG [Concomitant]
     Dates: start: 20210113
  9. FEROSUL TAB 325MG [Concomitant]
     Dates: start: 20201112
  10. POT CHLORIDE TAB 20MEQ ER [Concomitant]
     Dates: start: 20210105
  11. TORSEMIDE TAB 20MG [Concomitant]
     Dates: start: 20201125
  12. METOLAZONE TAB 5MG [Concomitant]
     Dates: start: 20201125
  13. SPIRONOLACT TAB 100MG [Concomitant]
     Dates: start: 20210125
  14. MORPHINE SUL TAB 30MG ER [Concomitant]
     Dates: start: 20210301
  15. TRAZODONE [Concomitant]
     Active Substance: TRAZODONE HYDROCHLORIDE
     Dates: start: 20210314
  16. ELIQUIS [Suspect]
     Active Substance: APIXABAN
     Indication: PRODUCT USED FOR UNKNOWN INDICATION
     Dates: start: 20201220
  17. ARIPIPRAZOLE TAB 5MG [Concomitant]
     Dates: start: 20210113
  18. STELARA [Concomitant]
     Active Substance: USTEKINUMAB
     Dates: start: 20200601
  19. FORTEO [Concomitant]
     Active Substance: TERIPARATIDE
     Dates: start: 20200601
  20. CYANOCOBALAM INJ 1000MCG [Concomitant]
     Dates: start: 20210224

REACTIONS (3)
  - Thrombosis [None]
  - Crohn^s disease [None]
  - Rectal haemorrhage [None]

NARRATIVE: CASE EVENT DATE: 20210422
